FAERS Safety Report 6463321-7 (Version None)
Quarter: 2009Q4

REPORT INFORMATION
  Report Type: 
  Country: None (occurrence: None)
  Receive Date: 20091130
  Receipt Date: 20090716
  Transmission Date: 20100525
  Serious: Yes (Other)
  Sender: FDA-Public Use
  Company Number: US-AMGEN-QUU353038

PATIENT
  Sex: Female
  Weight: 84.4 kg

DRUGS (2)
  1. ENBREL [Suspect]
     Indication: PSORIATIC ARTHROPATHY
     Route: 058
     Dates: start: 20050216
  2. PROZAC [Concomitant]
     Dates: start: 20071116

REACTIONS (7)
  - ARTHRALGIA [None]
  - CONTUSION [None]
  - DEPRESSION [None]
  - FATIGUE [None]
  - INJECTION SITE HAEMATOMA [None]
  - INJECTION SITE PAIN [None]
  - MOOD ALTERED [None]
